FAERS Safety Report 8536042 (Version 7)
Quarter: 2014Q2

REPORT INFORMATION
  Report Type: Report from Study
  Country: DK (occurrence: DK)
  Receive Date: 20120430
  Receipt Date: 20140618
  Transmission Date: 20141212
  Serious: Yes (Hospitalization)
  Sender: FDA-Public Use
  Company Number: DK-EISAI INC-E7389-02238-CLI-DK

PATIENT
  Age: 59 Year
  Sex: Female

DRUGS (8)
  1. ERIBULIN [Suspect]
     Indication: SARCOMA
     Dosage: 2.50 MG
     Route: 041
     Dates: start: 20120221, end: 20120410
  2. AMITRIPTYLINE [Concomitant]
     Indication: PAIN
     Route: 048
  3. NORITREN [Concomitant]
     Indication: PAIN
     Route: 048
  4. CONTALGIN [Concomitant]
     Indication: PAIN
     Route: 048
  5. PAMOL [Concomitant]
     Indication: PAIN
     Route: 048
  6. PANTOPRAZOLE [Concomitant]
     Indication: PAIN
     Route: 048
  7. MORPHINE [Concomitant]
     Indication: PAIN
     Route: 048
  8. PREDNISOLONE [Concomitant]
     Indication: PAIN
     Route: 048

REACTIONS (1)
  - Lung infection [Recovered/Resolved]
